FAERS Safety Report 7994680-1 (Version None)
Quarter: 2011Q4

REPORT INFORMATION
  Report Type: 
  Country: None (occurrence: None)
  Receive Date: 20111220
  Receipt Date: 20111216
  Transmission Date: 20120403
  Serious: Yes (Death, Hospitalization)
  Sender: FDA-Public Use
  Company Number: FR-PFIZER INC-2010100724

PATIENT
  Age: 44 Year
  Sex: Male
  Weight: 87 kg

DRUGS (2)
  1. EPLERENONE [Suspect]
     Indication: ACUTE MYOCARDIAL INFARCTION
     Dosage: 25 MG PER DAY
     Dates: start: 20060820
  2. CORDARONE [Concomitant]
     Dosage: UNK
     Dates: start: 20060815

REACTIONS (2)
  - DEATH [None]
  - ERYSIPELAS [None]
